FAERS Safety Report 9108874 (Version 3)
Quarter: 2013Q1

REPORT INFORMATION
  Report Type: Spontaneous
  Country: JP (occurrence: JP)
  Receive Date: 20130222
  Receipt Date: 20130308
  Transmission Date: 20140127
  Serious: Yes (Hospitalization, Other)
  Sender: FDA-Public Use
  Company Number: JP-PFIZER INC-2013061969

PATIENT
  Age: 80 Year
  Sex: Male

DRUGS (7)
  1. DETRUSITOL [Suspect]
     Dosage: 4 MG, 1X/DAY
     Route: 048
     Dates: start: 20130117, end: 20130214
  2. PRAZAXA [Concomitant]
     Dosage: 220 MG DAILY
  3. SPIRIVA [Concomitant]
     Dosage: 18 UG DAILY
  4. AMLODIPINE [Concomitant]
     Dosage: 2.5 MG DAILY
  5. NU LOTAN [Concomitant]
     Dosage: 50 MG DAILY
  6. PROSTAL [Concomitant]
     Dosage: 50 MG DAILY
  7. ASPENON [Concomitant]

REACTIONS (2)
  - Atrial fibrillation [Not Recovered/Not Resolved]
  - Supraventricular tachycardia [Not Recovered/Not Resolved]
